FAERS Safety Report 7445383-3 (Version None)
Quarter: 2011Q2

REPORT INFORMATION
  Report Type: 
  Country: None (occurrence: None)
  Receive Date: 20110420
  Receipt Date: 20110406
  Transmission Date: 20111010
  Serious: Yes (Congenital Anomaly)
  Sender: FDA-Public Use
  Company Number: 1000020068

PATIENT
  Weight: 3.629 kg

DRUGS (2)
  1. CITALOPRAM HYDROBROMIDE [Suspect]
     Dosage: 20 MG (20 MG,1 IN 1 D),TRANSPLACENTAL
     Route: 064
     Dates: end: 20100501
  2. FLUOXETINE [Concomitant]

REACTIONS (2)
  - CONGENITAL ANOMALY [None]
  - MULTIPLE CONGENITAL ABNORMALITIES [None]
